FAERS Safety Report 8376545-9 (Version None)
Quarter: 2012Q2

REPORT INFORMATION
  Report Type: 
  Country: None (occurrence: None)
  Receive Date: 20120518
  Receipt Date: 20120508
  Transmission Date: 20120825
  Serious: Yes (Other)
  Sender: FDA-Public Use
  Company Number: ADR-2012-00661

PATIENT
  Sex: Male

DRUGS (3)
  1. LIORESAL [Suspect]
     Indication: MUSCLE SPASTICITY
  2. LIORESAL [Suspect]
     Indication: SPINAL CORD DISORDER
  3. LIORESAL [Suspect]
     Indication: SPINAL CORD INJURY

REACTIONS (5)
  - MUSCLE SPASTICITY [None]
  - MEDICAL DEVICE COMPLICATION [None]
  - PRURITUS [None]
  - HYPERTENSION [None]
  - DRUG EFFECT DECREASED [None]
